FAERS Safety Report 16472905 (Version 1)
Quarter: 2019Q2

REPORT INFORMATION
  Report Type: Spontaneous
  Country: US (occurrence: US)
  Receive Date: 20190515
  Receipt Date: 20190515
  Transmission Date: 20190711
  Serious: Yes (Life-Threatening, Hospitalization, Disabling, Other)
  Sender: FDA-Public Use
  Company Number: None

PATIENT
  Age: 60 Year
  Sex: Female
  Weight: 71.67 kg

DRUGS (8)
  1. LEVOTHYROXINE 100MG [Concomitant]
     Active Substance: LEVOTHYROXINE
  2. ATORVASTATIN 40MG [Concomitant]
     Active Substance: ATORVASTATIN
  3. AMLODIPIN BESYLATE 5MG [Concomitant]
     Active Substance: AMLODIPINE BESYLATE
  4. FAMOTIDINE 20MG [Concomitant]
     Active Substance: FAMOTIDINE
  5. LOSARTAN POTASSIUM TABLETS 50MG [Suspect]
     Active Substance: LOSARTAN POTASSIUM
     Indication: HYPERTENSION
     Dosage: ?          QUANTITY:1 DF DOSAGE FORM;?
     Route: 048
     Dates: start: 201805, end: 20181010
  6. DULOXETINE HCL [Concomitant]
     Active Substance: DULOXETINE HYDROCHLORIDE
  7. VITAMIN D3 [Concomitant]
     Active Substance: CHOLECALCIFEROL
  8. 5CG [Concomitant]

REACTIONS (7)
  - Nausea [None]
  - Flatulence [None]
  - Vomiting [None]
  - Cold sweat [None]
  - Tremor [None]
  - Abdominal pain upper [None]
  - Gastrooesophageal reflux disease [None]

NARRATIVE: CASE EVENT DATE: 20180705
